FAERS Safety Report 10575013 (Version 1)
Quarter: 2014Q4

REPORT INFORMATION
  Report Type: Report from Study
  Country: US (occurrence: US)
  Receive Date: 20141111
  Receipt Date: 20141111
  Transmission Date: 20150529
  Serious: Yes (Other)
  Sender: FDA-Public Use
  Company Number: US-ROCHE-1487478

PATIENT
  Sex: Female

DRUGS (10)
  1. KEFLEX [Concomitant]
     Active Substance: CEPHALEXIN
  2. AVASTIN [Suspect]
     Active Substance: BEVACIZUMAB
     Indication: RETINAL TELANGIECTASIA
     Route: 065
  3. WELLBUTRIN [Concomitant]
     Active Substance: BUPROPION HYDROCHLORIDE
     Route: 065
  4. ESTRADIOL. [Concomitant]
     Active Substance: ESTRADIOL
     Route: 048
  5. AVASTIN [Suspect]
     Active Substance: BEVACIZUMAB
     Indication: OFF LABEL USE
  6. LOTREL [Concomitant]
     Active Substance: AMLODIPINE BESYLATE\BENAZEPRIL HYDROCHLORIDE
     Dosage: 10-20 MG
     Route: 065
  7. PHENYLEPHRINE [Concomitant]
     Active Substance: PHENYLEPHRINE\PHENYLEPHRINE HYDROCHLORIDE
     Route: 065
  8. TROPICAMIDE. [Concomitant]
     Active Substance: TROPICAMIDE
     Dosage: 1%
     Route: 065
  9. LUCENTIS [Suspect]
     Active Substance: RANIBIZUMAB
     Indication: RETINAL TELANGIECTASIA
     Route: 050
  10. XALATAN [Concomitant]
     Active Substance: LATANOPROST
     Dosage: 1 GTT 1 HS,
     Route: 031

REACTIONS (10)
  - Retinal degeneration [Unknown]
  - Chorioretinal scar [Unknown]
  - Metamorphopsia [Unknown]
  - Retinal telangiectasia [Unknown]
  - Eye pain [Unknown]
  - Vitreous floaters [Unknown]
  - Eye discharge [Unknown]
  - Photopsia [Unknown]
  - Blindness [Unknown]
  - Visual acuity reduced [Unknown]
